FAERS Safety Report 21802520 (Version 3)
Quarter: 2023Q1

REPORT INFORMATION
  Report Type: Spontaneous
  Country: CA (occurrence: CA)
  Receive Date: 20221231
  Receipt Date: 20230107
  Transmission Date: 20230417
  Serious: No
  Sender: FDA-Public Use
  Company Number: CA-CELLTRION INC.-2022CA021434

PATIENT

DRUGS (2)
  1. INFLECTRA [Suspect]
     Active Substance: INFLIXIMAB-DYYB
     Indication: Neurosarcoidosis
     Dosage: 5 MG/KG, EVERY 4 WEEK FOR 12 MONTHS, NOT YET STARTED
     Route: 042
  2. INFLECTRA [Suspect]
     Active Substance: INFLIXIMAB-DYYB
     Indication: Polyneuropathy

REACTIONS (3)
  - Off label use [Unknown]
  - Off label use [Unknown]
  - Intentional product use issue [Unknown]
